FAERS Safety Report 21195010 (Version 3)
Quarter: 2022Q4

REPORT INFORMATION
  Report Type: Spontaneous
  Country: JP (occurrence: JP)
  Receive Date: 20220810
  Receipt Date: 20221206
  Transmission Date: 20230112
  Serious: No
  Sender: FDA-Public Use
  Company Number: JP-GSK-JP2022JPN116067

PATIENT

DRUGS (6)
  1. SOTROVIMAB [Suspect]
     Active Substance: SOTROVIMAB
     Indication: COVID-19
     Dosage: 500 MG
     Route: 041
     Dates: start: 20220804, end: 20220804
  2. BETAMETHASONE [Suspect]
     Active Substance: BETAMETHASONE
     Indication: Maternal therapy to enhance foetal lung maturity
     Dosage: 12 MG
     Route: 030
     Dates: start: 20220729, end: 20220730
  3. HYDROXYPROGESTERONE CAPROATE [Suspect]
     Active Substance: HYDROXYPROGESTERONE CAPROATE
     Indication: Premature labour
     Dosage: 125 MG
     Route: 030
     Dates: start: 20220425, end: 20220725
  4. RITODRINE [Suspect]
     Active Substance: RITODRINE
     Indication: Premature labour
     Dosage: 100 MG
     Route: 041
     Dates: start: 20220727, end: 20220829
  5. PREDONINE [Suspect]
     Active Substance: PREDNISOLONE
     Indication: Asthma
     Dosage: 50 MG
     Route: 041
     Dates: start: 20220831, end: 20220904
  6. RITODRINE [Suspect]
     Active Substance: RITODRINE
     Indication: Premature labour
     Dosage: 20 MG
     Route: 048
     Dates: start: 20220830, end: 20220914

REACTIONS (2)
  - Exposure during pregnancy [Unknown]
  - Live birth [Unknown]
